FAERS Safety Report 24842774 (Version 1)
Quarter: 2025Q1

REPORT INFORMATION
  Report Type: Spontaneous
  Country: US (occurrence: US)
  Receive Date: 20250115
  Receipt Date: 20250115
  Transmission Date: 20250409
  Serious: No
  Sender: SANOFI AVENTIS
  Company Number: US-SA-2025SA009113

PATIENT

DRUGS (2)
  1. DUPIXENT [Suspect]
     Active Substance: DUPILUMAB
  2. TACROLIMUS [Suspect]
     Active Substance: TACROLIMUS

REACTIONS (6)
  - Eczema [Unknown]
  - Ocular discomfort [Unknown]
  - Skin burning sensation [Unknown]
  - Pruritus [Unknown]
  - Skin irritation [Unknown]
  - Erythema [Unknown]
